FAERS Safety Report 24333550 (Version 1)
Quarter: 2024Q3

REPORT INFORMATION
  Report Type: Spontaneous
  Country: CN (occurrence: CN)
  Receive Date: 20240918
  Receipt Date: 20240918
  Transmission Date: 20241017
  Serious: Yes (Hospitalization)
  Sender: JOHNSON AND JOHNSON
  Company Number: CN-JNJFOC-20240936049

PATIENT
  Age: 60 Year
  Sex: Male
  Weight: 77 kg

DRUGS (4)
  1. DARZALEX [Suspect]
     Active Substance: DARATUMUMAB
     Indication: Plasma cell myeloma
     Dosage: MEDICATION DOSES- 1?MEDICATION DAYS - 1
     Route: 041
     Dates: start: 20240904, end: 20240904
  2. METHYLPREDNISOLONE [Concomitant]
     Active Substance: METHYLPREDNISOLONE
     Indication: Body temperature decreased
     Route: 040
  3. FUROSEMIDE [Concomitant]
     Active Substance: FUROSEMIDE
     Indication: Body temperature decreased
     Route: 040
  4. NITROGLYCERIN [Concomitant]
     Active Substance: NITROGLYCERIN
     Route: 050

REACTIONS (4)
  - Hyperpyrexia [Recovering/Resolving]
  - Chills [Recovering/Resolving]
  - Cardiac failure [Recovering/Resolving]
  - Infusion related reaction [Recovering/Resolving]

NARRATIVE: CASE EVENT DATE: 20240904
